FAERS Safety Report 9364957 (Version 2)
Quarter: 2013Q3

REPORT INFORMATION
  Report Type: Spontaneous
  Country: US (occurrence: US)
  Receive Date: 20130624
  Receipt Date: 20130705
  Transmission Date: 20140515
  Serious: No
  Sender: FDA-Public Use
  Company Number: US-PFIZER INC-2013186218

PATIENT
  Age: 60 Year
  Sex: Male

DRUGS (1)
  1. DIFLUCAN [Suspect]
     Dosage: UNK
     Route: 048

REACTIONS (3)
  - Malaise [Unknown]
  - Gastrooesophageal reflux disease [Unknown]
  - Nausea [Unknown]
